FAERS Safety Report 4461202-1 (Version None)
Quarter: 2004Q3

REPORT INFORMATION
  Report Type: 
  Country: None (occurrence: None)
  Receive Date: 20040923
  Receipt Date: 20040907
  Transmission Date: 20050211
  Serious: Yes (Hospitalization)
  Sender: FDA-Public Use
  Company Number: 177539

PATIENT
  Age: 55 Year
  Sex: Female
  Weight: 77.1115 kg

DRUGS (6)
  1. AVONEX [Suspect]
     Indication: MULTIPLE SCLEROSIS
     Dosage: 30 MCG QW IM
     Route: 030
     Dates: start: 19980101
  2. MACRODANTIN [Concomitant]
  3. ZANTAC [Concomitant]
  4. DANTRIUM [Concomitant]
  5. CALCIUM [Concomitant]
  6. MULTI-VITAMINS [Concomitant]

REACTIONS (3)
  - CONDITION AGGRAVATED [None]
  - INCONTINENCE [None]
  - MULTIPLE SCLEROSIS [None]
